FAERS Safety Report 20351067 (Version 1)
Quarter: 2022Q1

REPORT INFORMATION
  Report Type: Spontaneous
  Country: US (occurrence: None)
  Receive Date: 20220118
  Receipt Date: 20220118
  Transmission Date: 20220423
  Serious: Yes (Hospitalization)
  Sender: FDA-Public Use
  Company Number: None

PATIENT
  Age: 53 Year
  Sex: Female

DRUGS (18)
  1. CASIRIVIMAB\IMDEVIMAB [Suspect]
     Active Substance: CASIRIVIMAB\IMDEVIMAB
     Indication: COVID-19
     Dosage: OTHER FREQUENCY : ONCE;?
     Route: 058
     Dates: start: 20220111, end: 20220111
  2. calcitrioL (ROCALTROL) 0.25 mcg capsule [Concomitant]
  3. CALTRATE WITH VITAMIN D [Concomitant]
     Active Substance: CALCIUM CARBONATE\CHOLECALCIFEROL
  4. chlorthalidone (HYGROTON) 25 mg tablet [Concomitant]
  5. Depakote 125 mg EC tablet [Concomitant]
  6. dicyclomine (BENTYL) 20 mg tablet [Concomitant]
  7. DULoxetine (CYMBALTA) 60 mg DR capsule [Concomitant]
  8. glipiZIDE (GlucotroL) 10 mg tablet [Concomitant]
  9. levothyroxine (SYNTHROID) 175 mcg tablet [Concomitant]
  10. linaGLIPtin (Tradjenta) 5 mg tablet [Concomitant]
  11. magnesium oxide (MAG-OX) 400 mg tablet [Concomitant]
  12. magnesium oxide (MAG-OX) 400 mg tablet [Concomitant]
  13. Pediatric multivitamin-iron-min (Flinestones complete) [Concomitant]
  14. omeprazole (Prilosec) 20mg capsule [Concomitant]
  15. promethazine 25mg suppository [Concomitant]
  16. AUGMENTIN [Concomitant]
     Active Substance: AMOXICILLIN\CLAVULANATE POTASSIUM
  17. Adderall XR 20mg (24hr capsule) [Concomitant]
  18. Adderall 10mg tablet [Concomitant]

REACTIONS (1)
  - Unevaluable event [None]

NARRATIVE: CASE EVENT DATE: 20220112
